FAERS Safety Report 8967986 (Version 1)
Quarter: 2012Q4

REPORT INFORMATION
  Report Type: Report from Study
  Country: GB (occurrence: JP)
  Receive Date: 20121218
  Receipt Date: 20121218
  Transmission Date: 20130627
  Serious: Yes (Hospitalization)
  Sender: FDA-Public Use
  Company Number: JP-BRISTOL-MYERS SQUIBB COMPANY-17192501

PATIENT
  Age: 70 Year
  Sex: Male
  Weight: 49 kg

DRUGS (3)
  1. ERBITUX [Suspect]
     Indication: GASTRIC CANCER
     Dosage: 4Jun10-4Jun10 400mg/m2
Jun10-26Nov10 250mg/m2
No of inf 23
     Route: 042
     Dates: start: 20100604, end: 20101126
  2. BRIPLATIN [Suspect]
     Indication: GASTRIC CANCER
     Route: 042
     Dates: start: 20100604, end: 20101029
  3. CAPECITABINE [Suspect]
     Indication: GASTRIC CANCER
     Dosage: tabs
     Route: 048
     Dates: start: 20100604, end: 20101202

REACTIONS (2)
  - Decreased appetite [Not Recovered/Not Resolved]
  - Gastric stenosis [Not Recovered/Not Resolved]
